FAERS Safety Report 10035373 (Version 1)
Quarter: 2014Q1

REPORT INFORMATION
  Report Type: Spontaneous
  Country: US (occurrence: None)
  Receive Date: 20140306
  Receipt Date: 20140306
  Transmission Date: 20141002
  Serious: Yes (Hospitalization)
  Sender: FDA-Public Use
  Company Number: 163-21880-13011593

PATIENT
  Age: 54 Year
  Sex: Female
  Weight: 98.43 kg

DRUGS (4)
  1. REVLIMID [Suspect]
     Indication: PLASMA CELL MYELOMA
     Route: 048
     Dates: start: 20120706, end: 20121121
  2. NEXIUM (ESOMEPRAZOLE) [Concomitant]
  3. POTASSIUM BICARBONATE [Concomitant]
  4. TYLENOL (PARACETAMOL) [Concomitant]

REACTIONS (1)
  - Renal failure [None]
